FAERS Safety Report 6164035-3 (Version None)
Quarter: 2009Q2

REPORT INFORMATION
  Report Type: 
  Country: None (occurrence: None)
  Receive Date: 20090420
  Receipt Date: 20090407
  Transmission Date: 20091009
  Serious: Yes (Death, Hospitalization)
  Sender: FDA-Public Use
  Company Number: 1000005687

PATIENT

DRUGS (1)
  1. CARBAMAZEPINE [Suspect]
     Dosage: 120 PILLS

REACTIONS (7)
  - COMPLETED SUICIDE [None]
  - DEPRESSED LEVEL OF CONSCIOUSNESS [None]
  - DISEASE COMPLICATION [None]
  - GASTROINTESTINAL HAEMORRHAGE [None]
  - HYPONATRAEMIA [None]
  - OVERDOSE [None]
  - RESPIRATORY DISORDER [None]
